FAERS Safety Report 25759475 (Version 1)
Quarter: 2025Q3

REPORT INFORMATION
  Report Type: Spontaneous
  Country: US (occurrence: US)
  Receive Date: 20250904
  Receipt Date: 20250904
  Transmission Date: 20251020
  Serious: No
  Sender: BOSTON SCIENTIFIC
  Company Number: US-BSC-2025000039

PATIENT
  Age: 22 Year

DRUGS (1)
  1. VARITHENA [Suspect]
     Active Substance: POLIDOCANOL
     Indication: Varicose vein
     Dates: start: 20250318, end: 20250318

REACTIONS (6)
  - Paraesthesia [Unknown]
  - Muscle spasms [Unknown]
  - Pain [Recovering/Resolving]
  - Discomfort [Unknown]
  - Contusion [Unknown]
  - Skin discolouration [Unknown]

NARRATIVE: CASE EVENT DATE: 20250301
